FAERS Safety Report 4476968-4 (Version None)
Quarter: 2004Q4

REPORT INFORMATION
  Report Type: 
  Country: None (occurrence: None)
  Receive Date: 20041018
  Receipt Date: 20041008
  Transmission Date: 20050328
  Serious: Yes (Other)
  Sender: FDA-Public Use
  Company Number: US-JNJFOC-20041003454

PATIENT
  Sex: Female
  Weight: 61.24 kg

DRUGS (8)
  1. REMICADE [Suspect]
     Route: 042
  2. REMICADE [Suspect]
     Indication: RHEUMATOID ARTHRITIS
     Route: 042
  3. ATIVAN [Concomitant]
  4. SLEEPING PILL [Concomitant]
  5. PREDNISONE [Concomitant]
  6. LOTREL [Concomitant]
  7. LOTREL [Concomitant]
  8. ATROVENT [Concomitant]

REACTIONS (8)
  - ABDOMINAL PAIN UPPER [None]
  - COUGH [None]
  - DYSPNOEA [None]
  - EPISTAXIS [None]
  - JOINT SWELLING [None]
  - OEDEMA PERIPHERAL [None]
  - RASH [None]
  - SJOGREN'S SYNDROME [None]
